FAERS Safety Report 5158225-6 (Version None)
Quarter: 2006Q4

REPORT INFORMATION
  Report Type: 
  Country: None (occurrence: None)
  Receive Date: 20061121
  Receipt Date: 20061121
  Transmission Date: 20070319
  Serious: No
  Sender: FDA-Public Use
  Company Number: None

PATIENT
  Sex: Female
  Weight: 60.6 kg

DRUGS (3)
  1. CARBOPLATIN [Suspect]
     Dosage: 715 MG
  2. TAXOTERE [Suspect]
     Dosage: 123 MG
  3. TAXOL [Suspect]
     Dosage: 99MG

REACTIONS (1)
  - WHITE BLOOD CELL COUNT DECREASED [None]
